FAERS Safety Report 4292800-6 (Version None)
Quarter: 2004Q1

REPORT INFORMATION
  Report Type: 
  Country: None (occurrence: None)
  Receive Date: 20040210
  Receipt Date: 20040129
  Transmission Date: 20041129
  Serious: Yes (Hospitalization)
  Sender: FDA-Public Use
  Company Number: 04-0009PO

PATIENT
  Age: 59 Year
  Sex: Male

DRUGS (4)
  1. PONSTEL [Suspect]
     Indication: MYALGIA
     Dosage: 1000MG, QID, PO
     Route: 048
     Dates: start: 20040113
  2. PONSTEL [Suspect]
     Indication: PYREXIA
     Dosage: 1000MG, QID, PO
     Route: 048
     Dates: start: 20040113
  3. BEZATOL SR (BEZAFIBRATE) [Suspect]
     Indication: HYPERLIPIDAEMIA
     Dosage: 200MG, QD, PO
     Route: 048
     Dates: start: 20030201
  4. NIFEDIPINE [Concomitant]

REACTIONS (2)
  - HEPATIC FUNCTION ABNORMAL [None]
  - RHABDOMYOLYSIS [None]
